FAERS Safety Report 18152055 (Version 1)
Quarter: 2020Q3

REPORT INFORMATION
  Report Type: Spontaneous
  Country: US (occurrence: US)
  Receive Date: 20200814
  Receipt Date: 20200814
  Transmission Date: 20201103
  Serious: Yes (Death)
  Sender: FDA-Public Use
  Company Number: US-VERO BIOTECH-2088627

PATIENT
  Age: 55 Year
  Sex: Male
  Weight: 134 kg

DRUGS (3)
  1. NOREPINEPHRINE. [Concomitant]
     Active Substance: NOREPINEPHRINE
     Route: 042
     Dates: start: 20200803
  2. GENOSYL [Suspect]
     Active Substance: NITRIC OXIDE
     Route: 055
     Dates: start: 20200803, end: 20200804
  3. VASOPRESSIN. [Concomitant]
     Active Substance: VASOPRESSIN
     Route: 042
     Dates: start: 20200803

REACTIONS (3)
  - Cardiac arrest [Fatal]
  - Blood gases abnormal [Unknown]
  - Blood potassium increased [Unknown]

NARRATIVE: CASE EVENT DATE: 20200803
